FAERS Safety Report 8840560 (Version 1)
Quarter: 2012Q4

REPORT INFORMATION
  Report Type: 
  Country: GB (occurrence: GB)
  Receive Date: 20121015
  Receipt Date: 20121015
  Transmission Date: 20130627
  Serious: Yes (Other)
  Sender: FDA-Public Use
  Company Number: GB-TEVA-363169ISR

PATIENT
  Age: 73 Year
  Sex: Female
  Weight: 76 kg

DRUGS (12)
  1. OXALIPLATIN [Suspect]
     Indication: GASTROINTESTINAL CARCINOMA
     Route: 042
  2. CAPECITABINE [Suspect]
     Indication: GASTROINTESTINAL CARCINOMA
     Route: 048
  3. ZOPICLONE [Concomitant]
     Dosage: 1-2 every night (acutely prescribed)
     Dates: start: 20120831
  4. SIMVASTATIN [Concomitant]
     Dosage: Every night.
  5. METFORMIN [Concomitant]
  6. LISINOPRIL [Concomitant]
  7. ATENOLOL [Concomitant]
  8. NOVORAPID [Concomitant]
  9. LANTUS [Concomitant]
  10. DEXAMETHASONE [Concomitant]
  11. METOCLOPRAMIDE [Concomitant]
  12. BUCCASTEM [Concomitant]

REACTIONS (4)
  - Ileus [Not Recovered/Not Resolved]
  - Pneumonia aspiration [Not Recovered/Not Resolved]
  - Lactic acidosis [Not Recovered/Not Resolved]
  - Shock [Not Recovered/Not Resolved]
